FAERS Safety Report 21269601 (Version 4)
Quarter: 2022Q3

REPORT INFORMATION
  Report Type: Report from Study
  Country: DE (occurrence: DE)
  Receive Date: 20220830
  Receipt Date: 20220923
  Transmission Date: 20221027
  Serious: Yes (Life-Threatening)
  Sender: FDA-Public Use
  Company Number: DE-ASTELLAS-2022US030824

PATIENT
  Age: 42 Year
  Sex: Male

DRUGS (3)
  1. GILTERITINIB [Suspect]
     Active Substance: GILTERITINIB
     Indication: Acute myeloid leukaemia
     Route: 065
     Dates: start: 20220816
  2. CYTARABINE [Suspect]
     Active Substance: CYTARABINE
     Indication: Acute myeloid leukaemia
     Route: 065
     Dates: start: 20220809
  3. DAUNORUBICIN [Suspect]
     Active Substance: DAUNORUBICIN
     Indication: Acute myeloid leukaemia
     Route: 065
     Dates: start: 20220809

REACTIONS (1)
  - Neutropenic sepsis [Recovered/Resolved]

NARRATIVE: CASE EVENT DATE: 20220821
